FAERS Safety Report 6443227-X (Version None)
Quarter: 2009Q4

REPORT INFORMATION
  Report Type: 
  Country: None (occurrence: None)
  Receive Date: 20091117
  Receipt Date: 20091105
  Transmission Date: 20100525
  Serious: Yes (Hospitalization)
  Sender: FDA-Public Use
  Company Number: US-ELI_LILLY_AND_COMPANY-US200911001677

PATIENT
  Sex: Male
  Weight: 90.703 kg

DRUGS (10)
  1. ZYPREXA ZYDIS [Suspect]
     Indication: BIPOLAR I DISORDER
     Dosage: 20 MG, DAILY (1/D)
     Dates: start: 20090509, end: 20090509
  2. ZYPREXA ZYDIS [Suspect]
     Dosage: 70 MG, DAILY (1/D)
     Dates: start: 20090510, end: 20090510
  3. ZYPREXA ZYDIS [Suspect]
     Dosage: 50 MG, DAILY (1/D)
     Dates: start: 20090511, end: 20090511
  4. ZYPREXA ZYDIS [Suspect]
     Dosage: 1 D/F, UNK
     Dates: start: 20090512, end: 20090522
  5. GEODON [Concomitant]
  6. ATIVAN [Concomitant]
  7. KLONOPIN [Concomitant]
  8. EFFEXOR [Concomitant]
     Indication: ANXIETY
     Dates: end: 20090101
  9. NICORETTE [Concomitant]
  10. LITHIUM [Concomitant]

REACTIONS (6)
  - AGGRESSION [None]
  - AMNESIA [None]
  - ENCEPHALOMALACIA [None]
  - HYPERSENSITIVITY [None]
  - HYPOMANIA [None]
  - OVERDOSE [None]
